FAERS Safety Report 8369102-1 (Version None)
Quarter: 2012Q2

REPORT INFORMATION
  Report Type: 
  Country: None (occurrence: None)
  Receive Date: 20120516
  Receipt Date: 20120516
  Transmission Date: 20120825
  Serious: Yes (Life-Threatening)
  Sender: FDA-Public Use
  Company Number: None

PATIENT
  Age: 76 Year
  Sex: Male
  Weight: 77.1115 kg

DRUGS (2)
  1. OCUVITE WITH LUTEIN BAUSCH+LOMB [Suspect]
     Indication: EYE HAEMORRHAGE
     Dosage: 1 TABLET DAILY PO
     Route: 048
  2. OCUVITE WITH LUTEIN BAUSCH+LOMB [Suspect]
     Indication: CARDIAC VALVE DISEASE
     Dosage: 1 TABLET DAILY PO
     Route: 048

REACTIONS (2)
  - DRUG INTERACTION [None]
  - PROTHROMBIN TIME PROLONGED [None]
